FAERS Safety Report 6204072-3 (Version None)
Quarter: 2009Q2

REPORT INFORMATION
  Report Type: 
  Country: None (occurrence: None)
  Receive Date: 20090526
  Receipt Date: 20090526
  Transmission Date: 20091009
  Serious: Yes (Other)
  Sender: FDA-Public Use
  Company Number: None

PATIENT
  Age: 56 Year
  Sex: Male
  Weight: 61.2356 kg

DRUGS (1)
  1. CLEOCIN PED 75 MG PFIZER U.S. [Suspect]
     Indication: TOOTH EXTRACTION
     Dosage: 2 TSPS 4X/DAY
     Dates: start: 20090504, end: 20090509

REACTIONS (7)
  - ABDOMINAL PAIN UPPER [None]
  - ANOREXIA [None]
  - COLITIS [None]
  - DEHYDRATION [None]
  - DYSGEUSIA [None]
  - LOSS OF EMPLOYMENT [None]
  - MALAISE [None]
